FAERS Safety Report 15883860 (Version 1)
Quarter: 2019Q1

REPORT INFORMATION
  Report Type: Spontaneous
  Country: US (occurrence: US)
  Receive Date: 20190129
  Receipt Date: 20190129
  Transmission Date: 20190417
  Serious: No
  Sender: FDA-Public Use
  Company Number: US-SUNOVION-2019SUN000240

PATIENT
  Sex: Female

DRUGS (1)
  1. LATUDA [Suspect]
     Active Substance: LURASIDONE HYDROCHLORIDE
     Dosage: HIGH DOSE
     Route: 048

REACTIONS (6)
  - Irritability [Unknown]
  - Hypophagia [Unknown]
  - Crying [Unknown]
  - Sleep disorder [Unknown]
  - Insomnia [Unknown]
  - Headache [Unknown]
